FAERS Safety Report 20098366 (Version 2)
Quarter: 2021Q4

REPORT INFORMATION
  Report Type: Spontaneous
  Country: DE (occurrence: DE)
  Receive Date: 20211122
  Receipt Date: 20211129
  Transmission Date: 20220303
  Serious: Yes (Other)
  Sender: FDA-Public Use
  Company Number: None

PATIENT
  Age: 65 Year
  Sex: Male
  Weight: 75 kg

DRUGS (10)
  1. TELMISARTAN [Suspect]
     Active Substance: TELMISARTAN
     Indication: Hypertension
     Dosage: 40 MILLIGRAM, QD, HALF DOSE FOR FEW DAYS, RENEWED INCREASE IN CREATININ
     Route: 048
  2. TELMISARTAN [Suspect]
     Active Substance: TELMISARTAN
     Dosage: 80 MILLIGRAM, QD
     Route: 048
     Dates: start: 20190701, end: 20201215
  3. TELMISARTAN [Suspect]
     Active Substance: TELMISARTAN
     Dosage: 80 MILLIGRAM, QD
     Route: 048
     Dates: start: 201908, end: 20201215
  4. CHOLECALCIFEROL [Concomitant]
     Active Substance: CHOLECALCIFEROL
     Indication: Vitamin D deficiency
     Dosage: 2000 INTERNATIONAL UNIT, QD
     Route: 048
     Dates: start: 20190101
  5. HYGROTON [Concomitant]
     Active Substance: CHLORTHALIDONE
     Indication: Hypertension
     Dosage: 25 MILLIGRAM, QD
     Route: 048
     Dates: start: 20190101
  6. CARVEDILOL [Concomitant]
     Active Substance: CARVEDILOL
     Indication: Cardiovascular event prophylaxis
     Dosage: 12.5 MILLIGRAM, QD
     Route: 048
     Dates: start: 20150601
  7. MOXONIDINE [Concomitant]
     Active Substance: MOXONIDINE
     Indication: Hypertension
     Dosage: 0.15 MILLIGRAM, QD
     Route: 048
     Dates: start: 20200101, end: 20210601
  8. EZETIMIBE [Concomitant]
     Active Substance: EZETIMIBE
     Indication: Hypercholesterolaemia
     Dosage: 10 MILLIGRAM, QD
     Route: 048
     Dates: start: 20100601
  9. ALLOPURINOL [Concomitant]
     Active Substance: ALLOPURINOL
     Indication: Blood uric acid increased
     Dosage: UNK (100-150 MILLIGRAM)
     Route: 048
     Dates: start: 20100601
  10. AMLODIPINE [Concomitant]
     Active Substance: AMLODIPINE BESYLATE
     Indication: Hypertension
     Dosage: 10 MILLIGRAM
     Route: 048
     Dates: start: 20100601

REACTIONS (4)
  - Renal impairment [Not Recovered/Not Resolved]
  - Weight bearing difficulty [Not Recovered/Not Resolved]
  - Fatigue [Not Recovered/Not Resolved]
  - Blood creatinine increased [Recovering/Resolving]

NARRATIVE: CASE EVENT DATE: 20190705
